FAERS Safety Report 5727688-7 (Version None)
Quarter: 2008Q2

REPORT INFORMATION
  Report Type: 
  Country: None (occurrence: None)
  Receive Date: 20080501
  Receipt Date: 20070611
  Transmission Date: 20081010
  Serious: Yes (Hospitalization)
  Sender: FDA-Public Use
  Company Number: PHEH2007US08643

PATIENT
  Age: 52 Year
  Sex: Female
  Weight: 65.3 kg

DRUGS (2)
  1. LOTREL [Suspect]
     Dosage: 10/20 MG, QD, ORAL
     Route: 048
     Dates: start: 20070416, end: 20070607
  2. HYDROCHLOROTHIAZIDE [Concomitant]

REACTIONS (1)
  - ANGIOEDEMA [None]
